FAERS Safety Report 23896124 (Version 1)
Quarter: 2024Q2

REPORT INFORMATION
  Report Type: Spontaneous
  Country: US (occurrence: US)
  Receive Date: 20240524
  Receipt Date: 20240524
  Transmission Date: 20240715
  Serious: No
  Sender: FDA-Public Use
  Company Number: US-PFIZER INC-202400107705

PATIENT
  Sex: Female
  Weight: 83.91 kg

DRUGS (6)
  1. DOFETILIDE [Suspect]
     Active Substance: DOFETILIDE
     Indication: Cardiac disorder
     Dosage: TWICE A DAY. ONCE IN A MORNING AND ONCE IN A AFTERNOON
  2. DOFETILIDE [Suspect]
     Active Substance: DOFETILIDE
     Dosage: 500 MILLIGRAMS, TWICE A DAY
  3. ASPIRIN [Concomitant]
     Active Substance: ASPIRIN
     Dosage: 81 MILLIGRAMS, ONCE A DAY, DAILY
  4. LOSARTAN [Concomitant]
     Active Substance: LOSARTAN
     Indication: Hypertension
     Dosage: 50 MILLIGRAMS, ONCE A DAY, DAILY
  5. MAGNESIUM [Concomitant]
     Active Substance: MAGNESIUM
     Dosage: 400 MILLIGRAMS, ONCE A DAY, DAILY
  6. SPIRONOLACTONE [Concomitant]
     Active Substance: SPIRONOLACTONE
     Indication: Hypertension
     Dosage: 25 MG

REACTIONS (3)
  - Palpitations [Unknown]
  - Wrong strength [Unknown]
  - Anxiety [Unknown]
